FAERS Safety Report 10156961 (Version 1)
Quarter: 2014Q2

REPORT INFORMATION
  Report Type: Spontaneous
  Country: US (occurrence: None)
  Receive Date: 20140506
  Receipt Date: 20140506
  Transmission Date: 20141212
  Serious: No
  Sender: FDA-Public Use
  Company Number: None

PATIENT
  Age: 37 Year
  Sex: Female
  Weight: 64.6 kg

DRUGS (1)
  1. CISPLATIN [Suspect]

REACTIONS (1)
  - Lymphocyte count decreased [None]
